FAERS Safety Report 4983164-0 (Version None)
Quarter: 2006Q2

REPORT INFORMATION
  Report Type: 
  Country: None (occurrence: None)
  Receive Date: 20060419
  Receipt Date: 20060404
  Transmission Date: 20061013
  Serious: Yes (Other)
  Sender: FDA-Public Use
  Company Number: 2006-BP-03941RO

PATIENT
  Age: 56 Year
  Sex: Male

DRUGS (2)
  1. CYCLOPHOSPHAMIDE [Suspect]
     Indication: HAEMATOPOIETIC STEM CELL MOBILISATION
     Dosage: 4 G/M2 X ONCE (NR) IV
     Route: 042
  2. MESNA [Suspect]
     Indication: HAEMATOPOIETIC STEM CELL MOBILISATION
     Dosage: 100 MG/KG X ONCE (NR), IV
     Route: 042

REACTIONS (1)
  - ATRIAL FIBRILLATION [None]
